FAERS Safety Report 7782475-3 (Version None)
Quarter: 2011Q3

REPORT INFORMATION
  Report Type: 
  Country: None (occurrence: None)
  Receive Date: 20110928
  Receipt Date: 20110919
  Transmission Date: 20111222
  Serious: Yes (Hospitalization)
  Sender: FDA-Public Use
  Company Number: US-BIOGENIDEC-2011BI035905

PATIENT
  Sex: Male

DRUGS (2)
  1. SOLU-MEDROL [Concomitant]
     Indication: PRODUCT USED FOR UNKNOWN INDICATION
  2. AVONEX [Suspect]
     Indication: MULTIPLE SCLEROSIS
     Route: 030
     Dates: start: 20100223, end: 20110819

REACTIONS (4)
  - GASTROINTESTINAL INFECTION [None]
  - DEHYDRATION [None]
  - ARTHROPATHY [None]
  - INFLUENZA LIKE ILLNESS [None]
